FAERS Safety Report 18627702 (Version 1)
Quarter: 2020Q4

REPORT INFORMATION
  Report Type: Spontaneous
  Country: US (occurrence: US)
  Receive Date: 20201216
  Receipt Date: 20201216
  Transmission Date: 20210114
  Serious: No
  Sender: FDA-Public Use
  Company Number: None

PATIENT
  Age: 26 Year
  Sex: Female

DRUGS (1)
  1. DELAFLOXACIN [Suspect]
     Active Substance: DELAFLOXACIN MEGLUMINE
     Indication: OSTEOMYELITIS BACTERIAL
     Route: 048
     Dates: start: 20201001, end: 20201015

REACTIONS (2)
  - Respiratory failure [None]
  - Eosinophilic pneumonia [None]

NARRATIVE: CASE EVENT DATE: 20201016
